FAERS Safety Report 9281156 (Version 1)
Quarter: 2013Q2

REPORT INFORMATION
  Report Type: Spontaneous
  Country: PL (occurrence: PL)
  Receive Date: 20130509
  Receipt Date: 20130509
  Transmission Date: 20140414
  Serious: Yes (Hospitalization, Other)
  Sender: FDA-Public Use
  Company Number: PHHY2013PL043703

PATIENT
  Age: 63 Year
  Sex: 0

DRUGS (23)
  1. CICLOSPORIN [Suspect]
     Indication: RENAL TRANSPLANT
     Dosage: UNK UKN, UNK
     Dates: start: 1983
  2. CICLOSPORIN [Suspect]
     Dosage: 550 MG/24H, AT DAY 5
  3. CICLOSPORIN [Suspect]
     Dosage: 400 MG/24H AT DISCHARGE
  4. CICLOSPORIN [Suspect]
     Dosage: 300 MG/24H, AT DAY 30
  5. CICLOSPORIN [Suspect]
     Dosage: 300 MG/24H, AT 6 MONTH
  6. CICLOSPORIN [Suspect]
     Dosage: 250 MG/24H, AT 12 MONTH
  7. CICLOSPORIN [Suspect]
     Dosage: 200 MG/24H, AT 24 MONTH
  8. CICLOSPORIN [Suspect]
     Dosage: 150 MG/24H, AT 5 YEAR
  9. CICLOSPORIN [Suspect]
     Dosage: 100 MG/24H, PRESENT
  10. METOPROLOL [Concomitant]
     Dosage: UNK UKN, UNK
  11. ENALAPRIL [Concomitant]
     Dosage: UNK UKN, UNK
  12. NITRENDIPINE [Concomitant]
     Dosage: UNK UKN, UNK
  13. ERYTHROPOIETIN ALPHA [Concomitant]
     Dosage: UNK UKN, UNK
  14. FOLIC ACID [Concomitant]
     Dosage: UNK UKN, UNK
  15. AZATHIOPRINE [Concomitant]
     Dosage: UNK UKN, UNK
  16. MYCOPHENOLATE MOFETIL [Concomitant]
     Dosage: 2.0 G/DL, AT DAY 5 OF TRANSPLANT
  17. MYCOPHENOLATE MOFETIL [Concomitant]
     Dosage: 2.0 G/DL, AT DAY OF DISCHARGE
  18. MYCOPHENOLATE MOFETIL [Concomitant]
     Dosage: 2.0 G/DL, AT DAY 30
  19. MYCOPHENOLATE MOFETIL [Concomitant]
     Dosage: 1.5 G/DL, AT 6 MONTH
  20. MYCOPHENOLATE MOFETIL [Concomitant]
     Dosage: 1.5 G, UNK
  21. MYCOPHENOLATE MOFETIL [Concomitant]
     Dosage: 1.5 G/DL, AT 24 MONTH
  22. MYCOPHENOLATE MOFETIL [Concomitant]
     Dosage: 1.0 G/DL, AT 5 YEAR
  23. MYCOPHENOLATE MOFETIL [Concomitant]
     Dosage: 1.0 G/DL, PRESENT

REACTIONS (19)
  - Urinary retention [Unknown]
  - Seborrhoeic keratosis [Unknown]
  - Hyperkeratosis [Unknown]
  - Actinic keratosis [Unknown]
  - Kidney transplant rejection [Unknown]
  - Basal cell carcinoma [Unknown]
  - Squamous cell carcinoma [Unknown]
  - Skin papilloma [Unknown]
  - Vomiting [Unknown]
  - Renal failure [Unknown]
  - Pyrexia [Unknown]
  - Escherichia urinary tract infection [Unknown]
  - Urinary tract infection enterococcal [Unknown]
  - Renal artery stenosis [Unknown]
  - Peripheral artery aneurysm [Unknown]
  - Pyelocaliectasis [Unknown]
  - Ureteric stenosis [Unknown]
  - Cholangitis [Unknown]
  - Ureteric dilatation [Unknown]
